FAERS Safety Report 4667647-9 (Version None)
Quarter: 2005Q2

REPORT INFORMATION
  Report Type: 
  Country: None (occurrence: None)
  Receive Date: 20050520
  Receipt Date: 20040831
  Transmission Date: 20051028
  Serious: Yes (Other)
  Sender: FDA-Public Use
  Company Number: PHNU2004DE03084

PATIENT
  Age: 68 Year
  Sex: Female
  Weight: 63 kg

DRUGS (23)
  1. EPIRUBICIN [Concomitant]
     Indication: BREAST CANCER FEMALE
     Dosage: UNK, ONCE/SINGLE
     Route: 042
     Dates: start: 20010328, end: 20010328
  2. EPIRUBICIN [Concomitant]
     Dosage: UNK, ONCE/SINGLE
     Route: 042
     Dates: start: 20010430, end: 20010430
  3. EPIRUBICIN [Concomitant]
     Dosage: UNK, ONCE/SINGLE
     Route: 042
     Dates: start: 20010528, end: 20010528
  4. EPIRUBICIN [Concomitant]
     Dosage: UNK, ONCE/SINGLE
     Route: 042
     Dates: start: 20010625, end: 20010625
  5. EPIRUBICIN [Concomitant]
     Dosage: UNK, ONCE/SINGLE
     Route: 042
     Dates: start: 20010723, end: 20010723
  6. EPIRUBICIN [Concomitant]
     Dosage: UNK, ONCE/SINGLE
     Route: 042
     Dates: start: 20010820, end: 20010820
  7. EPIRUBICIN [Concomitant]
     Dosage: UNK, ONCE/SINGLE
     Route: 042
     Dates: start: 20010924, end: 20010924
  8. EPIRUBICIN [Concomitant]
     Dosage: UNK, ONCE/SINGLE
     Route: 042
     Dates: start: 20011023, end: 20011023
  9. CYCLOSTIN [Concomitant]
     Indication: BREAST CANCER FEMALE
     Dosage: UNK, ONCE/SINGLE
     Route: 042
     Dates: start: 20010328, end: 20010328
  10. CYCLOSTIN [Concomitant]
     Dosage: UNK, ONCE/SINGLE
     Route: 042
     Dates: start: 20010430, end: 20010430
  11. CYCLOSTIN [Concomitant]
     Dosage: UNK, ONCE/SINGLE
     Route: 042
     Dates: start: 20010528, end: 20010528
  12. CYCLOSTIN [Concomitant]
     Dosage: UNK, ONCE/SINGLE
     Route: 042
     Dates: start: 20010625, end: 20010625
  13. CYCLOSTIN [Concomitant]
     Dosage: UNK, ONCE/SINGLE
     Route: 042
     Dates: start: 20010723, end: 20010723
  14. CYCLOSTIN [Concomitant]
     Dosage: UNK, ONCE/SINGLE
     Route: 042
     Dates: start: 20010820, end: 20010820
  15. CYCLOSTIN [Concomitant]
     Dosage: UNK, ONCE/SINGLE
     Route: 042
     Dates: start: 20010924, end: 20010924
  16. CYCLOSTIN [Concomitant]
     Dosage: UNK, ONCE/SINGLE
     Route: 042
     Dates: start: 20011023, end: 20011023
  17. PACLITAXEL [Concomitant]
     Indication: BREAST CANCER FEMALE
     Dosage: 160 MG, ONCE/SINGLE
     Route: 042
     Dates: start: 20020430, end: 20020430
  18. PACLITAXEL [Concomitant]
     Dosage: 160 MG, ONCE/SINGLE
     Route: 042
     Dates: start: 20020507, end: 20020507
  19. PACLITAXEL [Concomitant]
     Dosage: 160 MG, ONCE/SINGLE
     Route: 042
     Dates: start: 20020521, end: 20020521
  20. PACLITAXEL [Concomitant]
     Dosage: 160 MG, ONCE/SINGLE
     Route: 042
     Dates: start: 20020528, end: 20020528
  21. CYCLOPHOSPHAMIDE + 5-FU + METHOTREXATE [Concomitant]
     Indication: BREAST CANCER FEMALE
     Route: 042
     Dates: start: 20020704, end: 20021022
  22. AREDIA [Suspect]
     Indication: METASTASES TO BONE
     Dosage: 90 MG, UNK
     Route: 042
     Dates: start: 20040504, end: 20040504
  23. AREDIA [Suspect]
     Dosage: 90 MG, UNK
     Route: 042
     Dates: start: 20010430, end: 20031222

REACTIONS (3)
  - JAW DISORDER [None]
  - OSTEONECROSIS [None]
  - TOOTH DISORDER [None]
